FAERS Safety Report 9303452 (Version 1)
Quarter: 2013Q2

REPORT INFORMATION
  Report Type: Spontaneous
  Country: US (occurrence: US)
  Receive Date: 20130522
  Receipt Date: 20130522
  Transmission Date: 20140414
  Serious: Yes (Hospitalization)
  Sender: FDA-Public Use
  Company Number: US-BAYER-2013-062775

PATIENT
  Age: 49 Year
  Sex: Female
  Weight: 74.83 kg

DRUGS (4)
  1. BEYAZ [Suspect]
  2. YAZ [Suspect]
     Indication: DYSFUNCTIONAL UTERINE BLEEDING
  3. FLUOXETINE HCL [Concomitant]
     Dosage: 20 MG, UNK
  4. SERAFEM [Concomitant]

REACTIONS (1)
  - Pulmonary embolism [None]
